FAERS Safety Report 7772333-2 (Version None)
Quarter: 2011Q3

REPORT INFORMATION
  Report Type: 
  Country: None (occurrence: None)
  Receive Date: 20110922
  Receipt Date: 20100811
  Transmission Date: 20111222
  Serious: No
  Sender: FDA-Public Use
  Company Number: US-ASTRAZENECA-2007UW24317

PATIENT
  Age: 40 Year
  Sex: Female
  Weight: 102.5 kg

DRUGS (16)
  1. SEROQUEL [Suspect]
     Dosage: 100 MG TO 200 MG
     Route: 048
     Dates: start: 20040705
  2. SEROQUEL [Suspect]
     Dosage: 100 MG TO 200 MG
     Route: 048
     Dates: start: 20040705
  3. RISPERDAL [Concomitant]
     Route: 048
     Dates: start: 20040802
  4. ABILIFY [Concomitant]
  5. SEROQUEL [Suspect]
     Dosage: 100-200 MG
     Route: 048
     Dates: start: 20040507
  6. SEROQUEL [Suspect]
     Dosage: 100 MG TO 200 MG
     Route: 048
     Dates: start: 20040705
  7. HCTZ/TRIAMATERENE [Concomitant]
     Indication: HYPERTENSION
     Route: 048
     Dates: start: 20040408
  8. CLONAZEPAM [Concomitant]
     Dosage: 0.5 MG EVERY MORNING AND 4 MG AT NIGHT
     Dates: start: 20040408
  9. SEROQUEL [Suspect]
     Dosage: 100-200 MG
     Route: 048
     Dates: start: 20040507
  10. VENLAFAXINE HYDROCHLORIDE [Concomitant]
     Dates: start: 20040408
  11. SEROQUEL [Suspect]
     Indication: BIPOLAR DISORDER
     Dosage: 100 MG TO 200 MG
     Route: 048
     Dates: start: 20030601
  12. SEROQUEL [Suspect]
     Indication: ANXIETY
     Dosage: 100 MG TO 200 MG
     Route: 048
     Dates: start: 20030601
  13. SEROQUEL [Suspect]
     Indication: DEPRESSION
     Dosage: 100 MG TO 200 MG
     Route: 048
     Dates: start: 20030601
  14. RISPERDAL [Concomitant]
     Indication: DEPRESSION
     Dates: start: 20040401, end: 20050101
  15. SEROQUEL [Suspect]
     Dosage: 100-200 MG
     Route: 048
     Dates: start: 20040507
  16. AMBIEN [Concomitant]
     Dates: start: 20040408

REACTIONS (5)
  - OBESITY [None]
  - TYPE 2 DIABETES MELLITUS [None]
  - HYPERSENSITIVITY [None]
  - TYPE 1 DIABETES MELLITUS [None]
  - DIABETIC COMPLICATION [None]
